FAERS Safety Report 4745494-7 (Version None)
Quarter: 2005Q3

REPORT INFORMATION
  Report Type: 
  Country: None (occurrence: None)
  Receive Date: 20050815
  Receipt Date: 20050309
  Transmission Date: 20060218
  Serious: Yes (Hospitalization, Disabling)
  Sender: FDA-Public Use
  Company Number: US-MERCK-0503USA01965

PATIENT
  Age: 71 Year
  Sex: Male
  Weight: 86 kg

DRUGS (14)
  1. PROVENTIL [Concomitant]
     Route: 065
  2. DILANTIN [Concomitant]
     Route: 065
  3. VIOXX [Suspect]
     Indication: ARTHRITIS
     Route: 048
     Dates: start: 20010525, end: 20040101
  4. PRINIVIL [Concomitant]
     Indication: HYPERTENSION
     Route: 065
     Dates: start: 19970901, end: 20050401
  5. ZESTRIL [Concomitant]
     Indication: HYPERTENSION
     Route: 065
     Dates: start: 19970901, end: 20050401
  6. NORVASC [Concomitant]
     Route: 065
     Dates: start: 19980101, end: 20050401
  7. HYDROCHLOROTHIAZIDE [Concomitant]
     Indication: HYPERTENSION
     Route: 065
     Dates: start: 19980101, end: 20050401
  8. ASPIRIN [Concomitant]
     Route: 065
     Dates: start: 19980101, end: 20050401
  9. ECOTRIN [Concomitant]
     Route: 065
  10. LIPITOR [Concomitant]
     Route: 065
  11. BISOPROLOL [Concomitant]
     Route: 065
  12. MINOXIDIL [Concomitant]
     Route: 065
  13. GLUCOTROL [Concomitant]
     Route: 065
  14. GLUCOTROL [Concomitant]
     Route: 048

REACTIONS (11)
  - ADVERSE EVENT [None]
  - ARTERIAL OCCLUSIVE DISEASE [None]
  - BACK DISORDER [None]
  - BLOOD PRESSURE INADEQUATELY CONTROLLED [None]
  - CORONARY ARTERY DISEASE [None]
  - DIVERTICULUM INTESTINAL [None]
  - HAEMORRHOIDS [None]
  - HYPERTENSION [None]
  - MYOCARDIAL INFARCTION [None]
  - RENAL ARTERY STENOSIS [None]
  - ROTATOR CUFF SYNDROME [None]
